FAERS Safety Report 6545314-4 (Version None)
Quarter: 2010Q1

REPORT INFORMATION
  Report Type: 
  Country: None (occurrence: None)
  Receive Date: 20100121
  Receipt Date: 20100113
  Transmission Date: 20100710
  Serious: Yes (Disabling)
  Sender: FDA-Public Use
  Company Number: DE-MERCK-0910USA02228

PATIENT
  Age: 83 Year
  Sex: Female

DRUGS (6)
  1. PRINIVIL [Suspect]
     Indication: HYPERTENSION
     Route: 048
     Dates: start: 20020101, end: 20090901
  2. PRINIVIL [Suspect]
     Indication: CARDIAC FAILURE
     Route: 048
     Dates: start: 20020101, end: 20090901
  3. SIMVASTATIN [Concomitant]
     Route: 048
     Dates: start: 20000101
  4. ASPIRIN [Concomitant]
     Route: 065
     Dates: start: 20000101
  5. METOPROLOL SUCCINATE [Concomitant]
     Route: 065
     Dates: start: 20020201
  6. MOLSIDOMINE [Concomitant]
     Route: 065
     Dates: start: 20090601

REACTIONS (1)
  - POLYNEUROPATHY [None]
